FAERS Safety Report 15158614 (Version 13)
Quarter: 2022Q2

REPORT INFORMATION
  Report Type: Report from Study
  Country: AU (occurrence: AU)
  Receive Date: 20180718
  Receipt Date: 20220630
  Transmission Date: 20220721
  Serious: Yes (Hospitalization, Other)
  Sender: FDA-Public Use
  Company Number: AU-BRISTOL-MYERS SQUIBB COMPANY-BMS-2018-065752

PATIENT
  Age: 64 Year
  Sex: Female
  Weight: 73 kg

DRUGS (26)
  1. IPILIMUMAB [Suspect]
     Active Substance: IPILIMUMAB
     Indication: Renal cell carcinoma
     Dosage: 75 MILLIGRAM, Q6WK
     Route: 042
     Dates: start: 20180420, end: 20180601
  2. PROCHLORPERAZINE [Concomitant]
     Active Substance: PROCHLORPERAZINE
     Indication: Adverse event
     Dosage: 5 MILLIGRAM
     Route: 048
     Dates: start: 20180701, end: 20180910
  3. LORAZEPAM [Concomitant]
     Active Substance: LORAZEPAM
     Indication: Adverse event
     Dosage: 3 MILLIGRAM
     Route: 048
     Dates: start: 20180702, end: 20180711
  4. LORAZEPAM [Concomitant]
     Active Substance: LORAZEPAM
     Indication: Adverse event
     Dosage: 4 MILLIGRAM
     Route: 060
     Dates: start: 20180711, end: 20180910
  5. LORAZEPAM [Concomitant]
     Active Substance: LORAZEPAM
     Indication: Anxiety
  6. ATENOLOL [Concomitant]
     Active Substance: ATENOLOL
     Indication: Product used for unknown indication
     Dosage: 50 MILLIGRAM
     Route: 048
     Dates: start: 201711, end: 20180723
  7. HYDROCORTISONE [Concomitant]
     Active Substance: HYDROCORTISONE
     Indication: Adverse event
     Dosage: 100 MILLIGRAM
     Route: 042
     Dates: start: 20180711, end: 20180711
  8. HYDROCORTISONE [Concomitant]
     Active Substance: HYDROCORTISONE
     Indication: Adverse event
     Dosage: 150 MILLIGRAM
     Route: 042
     Dates: start: 20180711, end: 20180712
  9. HYDROCORTISONE [Concomitant]
     Active Substance: HYDROCORTISONE
     Indication: Adverse event
     Dosage: 50 MILLIGRAM
     Route: 042
     Dates: start: 20180713, end: 20180714
  10. HYDROCORTISONE [Concomitant]
     Active Substance: HYDROCORTISONE
     Indication: Glucocorticoid deficiency
  11. METHYLPREDNISOLONE [Concomitant]
     Active Substance: METHYLPREDNISOLONE
     Indication: Adverse event
     Route: 042
     Dates: start: 20180712, end: 20180712
  12. POTASSIUM CHLORIDE [Concomitant]
     Active Substance: POTASSIUM CHLORIDE
     Indication: Adverse event
     Route: 048
     Dates: start: 20180712, end: 20180724
  13. POTASSIUM CHLORIDE [Concomitant]
     Active Substance: POTASSIUM CHLORIDE
     Indication: Hypokalaemia
     Dosage: 1 DOSAGE FORM
     Route: 042
     Dates: start: 20180714, end: 20180725
  14. TELMISARTAN [Concomitant]
     Active Substance: TELMISARTAN
     Indication: Product used for unknown indication
     Dosage: 40 MILLIGRAM
     Route: 048
     Dates: start: 201711, end: 20180710
  15. MOVICOL [Concomitant]
     Active Substance: POLYETHYLENE GLYCOL 3350\POTASSIUM CHLORIDE\SODIUM BICARBONATE\SODIUM CHLORIDE
     Indication: Adverse event
     Dosage: 1 UNITS NOT PROVIDED
     Route: 048
     Dates: start: 20180714, end: 20180714
  16. DOCUSATE SODIUM\SENNOSIDE B [Concomitant]
     Active Substance: DOCUSATE SODIUM\SENNOSIDE B
     Indication: Adverse event
     Dosage: 2 UNITS NOT PROVIDED
     Route: 048
     Dates: start: 20180714, end: 20180909
  17. THYROXINE [Concomitant]
     Active Substance: LEVOTHYROXINE
     Indication: Adverse event
     Route: 048
     Dates: start: 20180615, end: 20180717
  18. ATORVASTATIN [Concomitant]
     Active Substance: ATORVASTATIN
     Indication: Product used for unknown indication
     Dosage: 40 MILLIGRAM
     Route: 048
     Dates: start: 201711, end: 201807
  19. LORATADINE [Concomitant]
     Active Substance: LORATADINE
     Indication: Product used for unknown indication
     Dosage: 10 MILLIGRAM
     Route: 048
     Dates: start: 20180504, end: 20180910
  20. LEVOTHYROXINE SODIUM [Concomitant]
     Active Substance: LEVOTHYROXINE SODIUM
     Indication: Product used for unknown indication
     Dosage: 1 DOSAGE FORM
     Route: 048
     Dates: start: 20180615, end: 20180717
  21. METOCLOPRAMIDE [Concomitant]
     Active Substance: METOCLOPRAMIDE
     Indication: Product used for unknown indication
     Dosage: 40 MILLIGRAM
     Route: 048
     Dates: start: 20180703, end: 20180910
  22. ONDANSETRON [Concomitant]
     Active Substance: ONDANSETRON
     Indication: Vomiting
     Dosage: 16 MILLIGRAM
     Route: 042
     Dates: start: 20180711, end: 20180711
  23. ONDANSETRON [Concomitant]
     Active Substance: ONDANSETRON
     Dosage: 32 MILLIGRAM
     Route: 048
     Dates: start: 20180712, end: 20180801
  24. ONDANSETRON [Concomitant]
     Active Substance: ONDANSETRON
     Dosage: 8 MILLIGRAM, QD
     Route: 048
     Dates: start: 20180703
  25. ESOMEPRAZOLE [Concomitant]
     Active Substance: ESOMEPRAZOLE
     Indication: Dyspepsia
     Dosage: 40 MILLIGRAM
     Route: 065
     Dates: start: 20180712
  26. ESOMEPRAZOLE [Concomitant]
     Active Substance: ESOMEPRAZOLE
     Dosage: 40 MILLIGRAM
     Route: 042
     Dates: start: 20180714, end: 20180724

REACTIONS (2)
  - Limbic encephalitis [Recovered/Resolved]
  - Dehydration [Recovered/Resolved]

NARRATIVE: CASE EVENT DATE: 20180711
